FAERS Safety Report 15355014 (Version 6)
Quarter: 2025Q3

REPORT INFORMATION
  Report Type: Spontaneous
  Country: EU (occurrence: EU)
  Receive Date: 20180906
  Receipt Date: 20250721
  Transmission Date: 20251020
  Serious: Yes (Death, Life-Threatening)
  Sender: ROCHE
  Company Number: EU-ADIENNEP-2018AD000335

PATIENT
  Age: 26 Year
  Sex: Female
  Weight: 97.0 kg

DRUGS (25)
  1. CELLCEPT [Suspect]
     Active Substance: MYCOPHENOLATE MOFETIL
     Indication: Prophylaxis against graft versus host disease
     Route: 042
     Dates: start: 20180605, end: 201807
  2. CELLCEPT [Suspect]
     Active Substance: MYCOPHENOLATE MOFETIL
     Route: 065
  3. ROCEPHIN [Suspect]
     Active Substance: CEFTRIAXONE SODIUM
     Indication: Pyrexia
     Dosage: MOST RECENT DOSE: 03/JUN/2018
     Route: 042
     Dates: start: 20180601
  4. MESNA [Suspect]
     Active Substance: MESNA
     Indication: Product used for unknown indication
     Route: 042
     Dates: start: 20180603, end: 20180605
  5. FLUDARABINE [Suspect]
     Active Substance: FLUDARABINE PHOSPHATE
     Indication: Stem cell transplant
     Dosage: DATE OF MOST RECENT DOSE: 29/MAY/2018?40 MG/M2
     Route: 042
     Dates: start: 20180526
  6. BUSULFAN [Suspect]
     Active Substance: BUSULFAN
     Indication: Stem cell transplant
     Dosage: DATE OF MOST RECENT DOSE: 28/MAY/2018?6MG/ML   DOSE: 3.2 MG/KG
     Route: 042
     Dates: start: 20180526, end: 20180528
  7. SODIUM CHLORIDE [Suspect]
     Active Substance: SODIUM CHLORIDE
     Indication: Medication dilution
     Dosage: CONDITIONING REGIMEN; DAY 5, 4 AND 3; BUSILVEX 281.5 MG + 0.9% SODIUM CHLORIDE 563 ML
     Route: 042
     Dates: start: 20180526, end: 20180528
  8. SODIUM CHLORIDE [Suspect]
     Active Substance: SODIUM CHLORIDE
     Dosage: CONDITIONING REGIMEN; DAY 5, 4, 3 AND 2; FLUDARABINE 78 MG + 0.9% SODIUM CHLORIDE 100 ML
     Route: 042
     Dates: start: 20180526, end: 20180529
  9. SODIUM CHLORIDE [Suspect]
     Active Substance: SODIUM CHLORIDE
     Dosage: CYCLE 1 DAY 3, ENDOXAN 4400 MG + 5% SODIUM CHLORIDE 500 ML
     Route: 042
     Dates: start: 20180603, end: 20180604
  10. SODIUM CHLORIDE [Suspect]
     Active Substance: SODIUM CHLORIDE
     Dosage: CONDITIONING REGIMEN; DAY 7 AND 6; THIOTEPA 440 MG + 0.9% SODIUM CHLORIDE 500 ML
     Route: 042
     Dates: start: 20180524, end: 20180525
  11. CYCLOSPORINE [Suspect]
     Active Substance: CYCLOSPORINE
     Indication: Prophylaxis against graft versus host disease
     Route: 042
     Dates: start: 20180605, end: 20180614
  12. CYCLOSPORINE [Suspect]
     Active Substance: CYCLOSPORINE
     Indication: Prophylaxis against transplant rejection
     Route: 065
  13. THIOTEPA [Suspect]
     Active Substance: THIOTEPA
     Indication: Stem cell transplant
     Dosage: DATE OF MOST RECENT DOSE: 25/MAY/2018
     Route: 042
     Dates: start: 20180524
  14. THIOTEPA [Suspect]
     Active Substance: THIOTEPA
     Route: 042
     Dates: start: 20180524, end: 20180525
  15. CYCLOPHOSPHAMIDE [Suspect]
     Active Substance: CYCLOPHOSPHAMIDE
     Indication: Prophylaxis against graft versus host disease
     Dosage: MOST RECENT DOSE: 04/JUN/2018
     Route: 042
     Dates: start: 20180603
  16. CYCLOPHOSPHAMIDE [Suspect]
     Active Substance: CYCLOPHOSPHAMIDE
     Indication: Prophylaxis against transplant rejection
  17. ACYCLOVIR [Suspect]
     Active Substance: ACYCLOVIR
     Indication: Pyrexia
     Route: 042
     Dates: start: 201806, end: 201806
  18. CEFTAZIDIME [Suspect]
     Active Substance: CEFTAZIDIME
     Indication: Pyrexia
     Route: 042
     Dates: start: 201806, end: 201806
  19. FLUCONAZOLE [Suspect]
     Active Substance: FLUCONAZOLE
     Indication: Pyrexia
     Dosage: 2 MG/ML
     Route: 042
     Dates: start: 201806, end: 201806
  20. VANCOMYCIN [Suspect]
     Active Substance: VANCOMYCIN
     Indication: Pyrexia
     Route: 042
  21. URSODIOL [Suspect]
     Active Substance: URSODIOL
     Indication: Drug toxicity prophylaxis
     Route: 048
     Dates: start: 201805, end: 201806
  22. URSODIOL [Suspect]
     Active Substance: URSODIOL
     Indication: Prophylaxis against graft versus host disease
  23. AMIKACIN [Suspect]
     Active Substance: AMIKACIN
     Indication: Pyrexia
     Route: 042
     Dates: start: 20180601, end: 20180603
  24. CYCLOPHOSPHAMIDE [Suspect]
     Active Substance: CYCLOPHOSPHAMIDE
     Indication: Prophylaxis against graft versus host disease
     Route: 065
  25. GRANULOCYTE COLONY-STIMULATING FACTOR NOS [Concomitant]
     Active Substance: GRANULOCYTE COLONY-STIMULATING FACTOR NOS
     Indication: Prophylaxis
     Route: 065

REACTIONS (23)
  - Sepsis [Fatal]
  - Hepatomegaly [Unknown]
  - Pneumothorax [Fatal]
  - Renal failure [Fatal]
  - Febrile bone marrow aplasia [Fatal]
  - Pyelonephritis [Fatal]
  - Cardiogenic shock [Fatal]
  - Urinary tract infection [Unknown]
  - Pelvic fluid collection [Unknown]
  - Weight increased [Unknown]
  - Myocarditis [Fatal]
  - Atelectasis [Unknown]
  - Mucosal inflammation [Unknown]
  - Disease recurrence [Fatal]
  - Candida infection [Unknown]
  - Peritonitis [Unknown]
  - Nausea [Unknown]
  - Pericardial effusion [Fatal]
  - Pneumonia staphylococcal [Fatal]
  - Diplopia [Unknown]
  - Cardiac tamponade [Recovered/Resolved]
  - Myopericarditis [Fatal]
  - Dyspnoea [Unknown]

NARRATIVE: CASE EVENT DATE: 20180608
